FAERS Safety Report 25059159 (Version 2)
Quarter: 2025Q2

REPORT INFORMATION
  Report Type: Spontaneous
  Country: US (occurrence: US)
  Receive Date: 20250310
  Receipt Date: 20250401
  Transmission Date: 20250717
  Serious: No
  Sender: BLUEPRINT MEDICINES
  Company Number: US-Blueprint Medicines Corporation-2025-AER-00426

PATIENT
  Age: 70 Year
  Sex: Female

DRUGS (2)
  1. AYVAKIT [Suspect]
     Active Substance: AVAPRITINIB
     Indication: Systemic mastocytosis
     Route: 065
     Dates: start: 20250218
  2. AYVAKIT [Suspect]
     Active Substance: AVAPRITINIB
     Route: 065
     Dates: start: 20250218

REACTIONS (5)
  - Vomiting [Unknown]
  - Nausea [Unknown]
  - Eye swelling [Unknown]
  - Swelling face [Unknown]
  - Eye oedema [Unknown]

NARRATIVE: CASE EVENT DATE: 20250324
